FAERS Safety Report 21177789 (Version 1)
Quarter: 2022Q3

REPORT INFORMATION
  Report Type: Spontaneous
  Country: IT (occurrence: IT)
  Receive Date: 20220805
  Receipt Date: 20220805
  Transmission Date: 20221026
  Serious: Yes (Other)
  Sender: FDA-Public Use
  Company Number: None

PATIENT
  Age: 50 Year
  Sex: Female
  Weight: 74 kg

DRUGS (2)
  1. TALTZ [Suspect]
     Active Substance: IXEKIZUMAB
     Indication: Psoriatic arthropathy
     Dosage: UNK UNK, UNKNOWN
     Route: 065
     Dates: start: 202111, end: 202201
  2. SULFASALAZINE [Concomitant]
     Active Substance: SULFASALAZINE
     Indication: Psoriatic arthropathy

REACTIONS (8)
  - Dermatitis bullous [Not Recovered/Not Resolved]
  - Rhinitis [Not Recovered/Not Resolved]
  - Alopecia [Not Recovered/Not Resolved]
  - Aphthous ulcer [Recovered/Resolved]
  - Skin exfoliation [Recovering/Resolving]
  - Dysuria [Recovered/Resolved]
  - Excessive cerumen production [Recovering/Resolving]
  - Pustule [Not Recovered/Not Resolved]

NARRATIVE: CASE EVENT DATE: 20220217
